FAERS Safety Report 7584308-7 (Version None)
Quarter: 2011Q2

REPORT INFORMATION
  Report Type: 
  Country: None (occurrence: None)
  Receive Date: 20110630
  Receipt Date: 20110628
  Transmission Date: 20111010
  Serious: Yes (Hospitalization, Other)
  Sender: FDA-Public Use
  Company Number: JP-PFIZER INC-2011144176

PATIENT
  Sex: Female

DRUGS (1)
  1. ATARAX [Suspect]
     Indication: PALPITATIONS
     Dosage: UNK
     Route: 048
     Dates: end: 20110613

REACTIONS (1)
  - CAESAREAN SECTION [None]
